FAERS Safety Report 25054293 (Version 1)
Quarter: 2025Q1

REPORT INFORMATION
  Report Type: Spontaneous
  Country: US (occurrence: US)
  Receive Date: 20250307
  Receipt Date: 20250307
  Transmission Date: 20250409
  Serious: No
  Sender: SANOFI AVENTIS
  Company Number: US-SANOFI-02433578

PATIENT
  Age: 61 Year

DRUGS (3)
  1. DUPIXENT [Suspect]
     Active Substance: DUPILUMAB
     Indication: Rash
  2. DUPIXENT [Suspect]
     Active Substance: DUPILUMAB
     Indication: Skin exfoliation
  3. DUPIXENT [Suspect]
     Active Substance: DUPILUMAB
     Indication: Skin haemorrhage

REACTIONS (1)
  - Off label use [Unknown]
